FAERS Safety Report 4740499-4 (Version None)
Quarter: 2005Q3

REPORT INFORMATION
  Report Type: 
  Country: None (occurrence: None)
  Receive Date: 20050809
  Receipt Date: 20050726
  Transmission Date: 20060218
  Serious: Yes (Hospitalization, Other)
  Sender: FDA-Public Use
  Company Number: GXKR2005FR01381

PATIENT
  Age: 63 Year
  Sex: Male

DRUGS (3)
  1. FLUOXETINE [Suspect]
     Dosage: 20 MG, QS
  2. MEPRONIZINE (ACEPROMETHAZINE, MEPROBAMATE) [Suspect]
     Dosage: 1DF QD
  3. TIMESTA (LORAZEPAM) 2.5MG [Suspect]
     Dosage: 3DF, QD

REACTIONS (5)
  - BRADYCARDIA [None]
  - FALL [None]
  - HEAD INJURY [None]
  - SYNCOPE [None]
  - TORSADE DE POINTES [None]
